FAERS Safety Report 10220814 (Version 1)
Quarter: 2014Q2

REPORT INFORMATION
  Report Type: Spontaneous
  Country: IN (occurrence: None)
  Receive Date: 20140604
  Receipt Date: 20140604
  Transmission Date: 20141212
  Serious: Yes (Life-Threatening)
  Sender: FDA-Public Use
  Company Number: 2014P1004509

PATIENT
  Age: 8 Year
  Sex: Female
  Weight: 22 kg

DRUGS (6)
  1. EPINEPHRNE [Suspect]
     Indication: PROCEDURAL HAEMORRHAGE
     Route: 058
  2. PROPOFOL [Concomitant]
  3. VECURONIUM [Concomitant]
  4. FENTANYL [Concomitant]
  5. NITROUS OXIDE [Concomitant]
  6. ISOFLURANE [Concomitant]

REACTIONS (9)
  - Blood pressure increased [None]
  - Crepitations [None]
  - Wheezing [None]
  - Sinus tachycardia [None]
  - Cardiac failure congestive [None]
  - Increased bronchial secretion [None]
  - Incorrect route of drug administration [None]
  - Wrong technique in drug usage process [None]
  - Oxygen saturation decreased [None]
